FAERS Safety Report 7534531-2 (Version None)
Quarter: 2011Q2

REPORT INFORMATION
  Report Type: 
  Country: None (occurrence: None)
  Receive Date: 20110609
  Receipt Date: 20091020
  Transmission Date: 20111010
  Serious: Yes (Other)
  Sender: FDA-Public Use
  Company Number: PHHY2009CZ45801

PATIENT
  Sex: Male

DRUGS (1)
  1. LAMISIL [Suspect]
     Dosage: 20 MG, DAILY

REACTIONS (1)
  - CEREBROVASCULAR ACCIDENT [None]
